FAERS Safety Report 10046850 (Version 1)
Quarter: 2014Q1

REPORT INFORMATION
  Report Type: Spontaneous
  Country: US (occurrence: US)
  Receive Date: 20140331
  Receipt Date: 20140331
  Transmission Date: 20141002
  Serious: Yes (Hospitalization)
  Sender: FDA-Public Use
  Company Number: US-ROCHE-1373362

PATIENT
  Age: 70 Year
  Sex: Female

DRUGS (2)
  1. PERJETA [Suspect]
     Indication: PRODUCT USED FOR UNKNOWN INDICATION
     Route: 065
  2. HERCEPTIN [Suspect]
     Indication: PRODUCT USED FOR UNKNOWN INDICATION
     Dosage: LOADING DOSE: 6MG/KILO
     Route: 065

REACTIONS (2)
  - Diarrhoea [Recovered/Resolved]
  - Blood creatinine abnormal [Unknown]
